FAERS Safety Report 16130144 (Version 1)
Quarter: 2019Q1

REPORT INFORMATION
  Report Type: Spontaneous
  Country: CN (occurrence: CN)
  Receive Date: 20190328
  Receipt Date: 20190328
  Transmission Date: 20190418
  Serious: Yes (Other)
  Sender: FDA-Public Use
  Company Number: CN-PFIZER INC-2019128826

PATIENT
  Age: 25 Year
  Sex: Male
  Weight: 78 kg

DRUGS (2)
  1. TAZOCIN [Suspect]
     Active Substance: PIPERACILLIN SODIUM\TAZOBACTAM SODIUM
     Indication: PNEUMONIA
     Dosage: 4.5 G, 3X/DAY (Q8H- EVERY 8 HOURS)
     Route: 041
     Dates: start: 20181219, end: 20181224
  2. SODIUM CHLORIDE. [Concomitant]
     Active Substance: SODIUM CHLORIDE
     Indication: VEHICLE SOLUTION USE
     Dosage: 100 ML, 3X/DAY
     Route: 041
     Dates: start: 20181219, end: 20181224

REACTIONS (6)
  - Angina pectoris [Unknown]
  - Chest discomfort [Recovering/Resolving]
  - Palpitations [Unknown]
  - Agranulocytosis [Recovering/Resolving]
  - White blood cell count decreased [Recovering/Resolving]
  - Injection site discomfort [Unknown]

NARRATIVE: CASE EVENT DATE: 20181224
